FAERS Safety Report 8047427-7 (Version None)
Quarter: 2012Q1

REPORT INFORMATION
  Report Type: 
  Country: None (occurrence: None)
  Receive Date: 20120116
  Receipt Date: 20120111
  Transmission Date: 20120608
  Serious: Yes (Other)
  Sender: FDA-Public Use
  Company Number: US-ABBOTT-11P-163-0874192-00

PATIENT
  Sex: Female
  Weight: 78.088 kg

DRUGS (8)
  1. NAPROXEN (ALEVE) [Suspect]
     Indication: RHEUMATOID ARTHRITIS
  2. LYRICA [Suspect]
     Indication: PRODUCT USED FOR UNKNOWN INDICATION
  3. CELEBREX [Suspect]
     Indication: RHEUMATOID ARTHRITIS
  4. PLAQUENIL [Suspect]
     Indication: RHEUMATOID ARTHRITIS
     Dates: start: 20100101
  5. ACETAMINOPHEN W/ CODEINE [Suspect]
     Indication: RHEUMATOID ARTHRITIS
     Dates: start: 20111001, end: 20111001
  6. HUMIRA [Suspect]
     Indication: RHEUMATOID ARTHRITIS
     Dosage: HAD 2 INJECTIONS
     Dates: start: 20110401
  7. VICODIN [Suspect]
     Indication: RHEUMATOID ARTHRITIS
     Dates: start: 20111001, end: 20111001
  8. SIMPONI [Suspect]
     Indication: RHEUMATOID ARTHRITIS
     Dates: start: 20111001, end: 20111001

REACTIONS (7)
  - NAUSEA [None]
  - HEADACHE [None]
  - VOMITING [None]
  - DEPRESSION [None]
  - BLOOD GLUCOSE INCREASED [None]
  - WEIGHT INCREASED [None]
  - CONVULSION [None]
